FAERS Safety Report 4664005-8 (Version None)
Quarter: 2005Q2

REPORT INFORMATION
  Report Type: 
  Country: None (occurrence: None)
  Receive Date: 20050516
  Receipt Date: 20050503
  Transmission Date: 20051028
  Serious: Yes (Other)
  Sender: FDA-Public Use
  Company Number: 2005070393

PATIENT
  Age: 48 Year
  Sex: Female
  Weight: 79.3795 kg

DRUGS (7)
  1. CELEBREX [Suspect]
     Indication: OSTEOARTHRITIS
     Dosage: ORAL
     Route: 048
     Dates: start: 20040101, end: 20040101
  2. BEXTRA [Suspect]
     Indication: OSTEOARTHRITIS
     Dosage: ORAL
     Route: 048
     Dates: start: 20040101, end: 20041201
  3. SERTRALINE HCL [Concomitant]
  4. QUETIAPINE FUMARATE [Concomitant]
  5. TIOTROPIUM BROMIDE (TIOTROPIUM BROMIDE) [Concomitant]
  6. OXYGEN (OXYGEN) [Concomitant]
  7. ALL OTHER THERAPEUTIC PRODUCTS (ALL OTHER THERAPEUTIC PRODUCTS) [Concomitant]

REACTIONS (5)
  - ARTHRALGIA [None]
  - BLOOD PRESSURE INCREASED [None]
  - BREAST CANCER [None]
  - DRUG INEFFECTIVE [None]
  - LIGAMENT INJURY [None]
